FAERS Safety Report 5442542-6 (Version None)
Quarter: 2007Q3

REPORT INFORMATION
  Report Type: 
  Country: None (occurrence: None)
  Receive Date: 20070830
  Receipt Date: 20070820
  Transmission Date: 20080115
  Serious: Yes (Other)
  Sender: FDA-Public Use
  Company Number: 017712

PATIENT
  Sex: Female

DRUGS (2)
  1. ADDERALL 10 [Suspect]
  2. ADDERALL XR (DEXAMFETAMINE SULFATE, DEXAMFETAMINE SACCHARATE, AMFETAMI [Suspect]

REACTIONS (2)
  - AORTIC VALVE INCOMPETENCE [None]
  - PULMONARY HYPERTENSION [None]
